FAERS Safety Report 11874113 (Version 2)
Quarter: 2016Q1

REPORT INFORMATION
  Report Type: Spontaneous
  Country: US (occurrence: US)
  Receive Date: 20151229
  Receipt Date: 20160128
  Transmission Date: 20160526
  Serious: Yes (Other)
  Sender: FDA-Public Use
  Company Number: PHEH2015US007666

PATIENT
  Sex: Female

DRUGS (5)
  1. RAPAMUNE [Suspect]
     Active Substance: SIROLIMUS
     Indication: RENAL TRANSPLANT
     Dosage: 3 MG, QD
     Route: 065
  2. PREDNISONE. [Concomitant]
     Active Substance: PREDNISONE
     Indication: PRODUCT USED FOR UNKNOWN INDICATION
     Dosage: 5 MG, QD
     Route: 065
     Dates: start: 2000
  3. PROGRAF [Suspect]
     Active Substance: TACROLIMUS\TACROLIMUS ANHYDROUS
     Indication: RENAL TRANSPLANT
     Dosage: 4.5 MG, QD (2 AND 2.5 MG)
     Route: 065
     Dates: start: 2005, end: 2014
  4. METOPROLOL. [Concomitant]
     Active Substance: METOPROLOL
     Indication: PRODUCT USED FOR UNKNOWN INDICATION
     Dosage: UNK
     Route: 065
     Dates: start: 2000
  5. CICLOSPORIN [Suspect]
     Active Substance: CYCLOSPORINE
     Indication: RENAL TRANSPLANT
     Dosage: UNK
     Route: 065
     Dates: start: 2000, end: 2005

REACTIONS (2)
  - Squamous cell carcinoma of skin [Unknown]
  - Skin cancer [Not Recovered/Not Resolved]

NARRATIVE: CASE EVENT DATE: 2000
